FAERS Safety Report 24638159 (Version 2)
Quarter: 2024Q4

REPORT INFORMATION
  Report Type: Spontaneous
  Country: US (occurrence: US)
  Receive Date: 20241119
  Receipt Date: 20241124
  Transmission Date: 20250115
  Serious: No
  Sender: AMGEN
  Company Number: US-AMGEN-USASP2024226504

PATIENT
  Sex: Female
  Weight: 81.19 kg

DRUGS (3)
  1. XGEVA [Suspect]
     Active Substance: DENOSUMAB
     Indication: Product used for unknown indication
     Dosage: UNK
     Route: 065
  2. IBRANCE [Concomitant]
     Active Substance: PALBOCICLIB
     Dosage: 125 MILLIGRAM
  3. LETROZOLE [Concomitant]
     Active Substance: LETROZOLE
     Dosage: 2.5 MILLIGRAM, QD

REACTIONS (3)
  - Sinusitis [Unknown]
  - Full blood count decreased [Not Recovered/Not Resolved]
  - Tooth disorder [Unknown]
